FAERS Safety Report 14952088 (Version 1)
Quarter: 2018Q2

REPORT INFORMATION
  Report Type: Spontaneous
  Country: DE (occurrence: DE)
  Receive Date: 20180530
  Receipt Date: 20180530
  Transmission Date: 20180711
  Serious: Yes (Hospitalization)
  Sender: FDA-Public Use
  Company Number: DE-MYLANLABS-2018M1034063

PATIENT
  Age: 53 Year
  Sex: Female

DRUGS (22)
  1. RISPERDAL [Suspect]
     Active Substance: RISPERIDONE
     Indication: PRODUCT USED FOR UNKNOWN INDICATION
     Dosage: 1 MG, QD
     Dates: start: 20170310, end: 20170313
  2. TAVOR (LORAZEPAM) [Concomitant]
     Active Substance: LORAZEPAM
     Indication: PRODUCT USED FOR UNKNOWN INDICATION
     Dosage: 2-3MG, QD
     Dates: start: 20170205, end: 20170206
  3. QUETIAPIN RETARD [Concomitant]
     Active Substance: QUETIAPINE
     Indication: PRODUCT USED FOR UNKNOWN INDICATION
     Dosage: AMBULANT BIS AUFNAHME
  4. SOLIAN [Concomitant]
     Active Substance: AMISULPRIDE
     Dosage: 200 MG, QD
     Dates: start: 20170301, end: 20170302
  5. VENLAFAXINE [Suspect]
     Active Substance: VENLAFAXINE HYDROCHLORIDE
     Indication: PRODUCT USED FOR UNKNOWN INDICATION
     Dosage: AMBULANT - STAT. WEITER
  6. QUETIAPIN [Concomitant]
     Active Substance: QUETIAPINE
     Dosage: AMBULANT BIS AUFNAHME
  7. REMERGIL [Concomitant]
     Active Substance: MIRTAZAPINE
     Indication: PRODUCT USED FOR UNKNOWN INDICATION
     Dosage: 30 MG, QD
     Dates: start: 20170206, end: 20170216
  8. REMERGIL [Concomitant]
     Active Substance: MIRTAZAPINE
     Dosage: AMBULANT
  9. METFORMIN [Concomitant]
     Active Substance: METFORMIN HYDROCHLORIDE
     Indication: PRODUCT USED FOR UNKNOWN INDICATION
     Dosage: AMBULANT - STAT. WEITER
  10. RISPERDAL [Suspect]
     Active Substance: RISPERIDONE
     Dosage: 2 MG, QD
     Dates: start: 20170206, end: 20170209
  11. REMERGIL [Concomitant]
     Active Substance: MIRTAZAPINE
     Dosage: 45 MG, QD
     Dates: start: 20170217
  12. HYPNOREX [Concomitant]
     Active Substance: LITHIUM CARBONATE
     Indication: PRODUCT USED FOR UNKNOWN INDICATION
     Dosage: AMBULANT - STAT. WEITER
  13. TAVOR (LORAZEPAM) [Concomitant]
     Active Substance: LORAZEPAM
     Dosage: 4 MG, QD
     Dates: start: 20170222, end: 20170223
  14. QUETIAPIN [Concomitant]
     Active Substance: QUETIAPINE
     Indication: PRODUCT USED FOR UNKNOWN INDICATION
     Dosage: 50 MG, QD
     Dates: start: 20170224
  15. SOLIAN [Concomitant]
     Active Substance: AMISULPRIDE
     Dosage: 400 MG, QD
     Dates: start: 20170303, end: 20170310
  16. RISPERDAL [Suspect]
     Active Substance: RISPERIDONE
     Dosage: 2 MG, QD
     Dates: start: 20170306, end: 20170309
  17. SOLIAN [Concomitant]
     Active Substance: AMISULPRIDE
     Indication: PRODUCT USED FOR UNKNOWN INDICATION
     Dosage: 500 MG, QD
     Dates: start: 20170311
  18. TAVOR (LORAZEPAM) [Concomitant]
     Active Substance: LORAZEPAM
     Dosage: 3.5 MG, QD
     Dates: start: 20170207, end: 201702
  19. TAVOR (LORAZEPAM) [Concomitant]
     Active Substance: LORAZEPAM
     Dosage: 4.5 MG, QD
     Dates: start: 20170212, end: 20170221
  20. RISPERDAL [Suspect]
     Active Substance: RISPERIDONE
     Dosage: 4 MG, QD
     Dates: start: 20170210, end: 20170305
  21. LAMOTRIGIN [Concomitant]
     Active Substance: LAMOTRIGINE
     Indication: PRODUCT USED FOR UNKNOWN INDICATION
     Dosage: AMBULANT
  22. TAVOR (LORAZEPAM) [Concomitant]
     Active Substance: LORAZEPAM
     Dosage: 3.5 MG, QD
     Dates: start: 20170224

REACTIONS (2)
  - Transaminases increased [Unknown]
  - Abdominal pain upper [Unknown]

NARRATIVE: CASE EVENT DATE: 20170309
